FAERS Safety Report 9455991 (Version 1)
Quarter: 2013Q3

REPORT INFORMATION
  Report Type: Spontaneous
  Country: FR (occurrence: FR)
  Receive Date: 20130813
  Receipt Date: 20130813
  Transmission Date: 20140515
  Serious: Yes (Other)
  Sender: FDA-Public Use
  Company Number: FR-009507513-1306FRA008637

PATIENT
  Age: 83 Year
  Sex: Male

DRUGS (13)
  1. DIPROSONE [Suspect]
     Dosage: UNK
     Route: 003
     Dates: end: 20130515
  2. BRENTUXIMAB VEDOTIN [Suspect]
     Indication: MYCOSIS FUNGOIDES REFRACTORY
     Dosage: 130 MG, CYCLICAL
     Route: 042
     Dates: start: 20130319, end: 20130430
  3. CORTANCYL [Suspect]
     Dosage: UNK
     Route: 048
     Dates: start: 20130319, end: 20130515
  4. EXFORGE [Concomitant]
  5. KARDEGIC [Concomitant]
  6. INEXIUM [Concomitant]
  7. TAHOR [Concomitant]
  8. ATACAND [Concomitant]
  9. ZELITREX [Concomitant]
  10. ZYRTEC [Concomitant]
  11. ATARAX (ALPRAZOLAM) [Concomitant]
  12. ADENURIC [Concomitant]
  13. CARMUSTINE [Concomitant]

REACTIONS (1)
  - Diabetes mellitus [Recovering/Resolving]
